FAERS Safety Report 4706369-2 (Version None)
Quarter: 2005Q3

REPORT INFORMATION
  Report Type: 
  Country: None (occurrence: None)
  Receive Date: 20050705
  Receipt Date: 20040126
  Transmission Date: 20060218
  Serious: Yes (Hospitalization)
  Sender: FDA-Public Use
  Company Number: JP-BRISTOL-MYERS SQUIBB COMPANY-12486858

PATIENT
  Age: 66 Year
  Sex: Female
  Weight: 45 kg

DRUGS (2)
  1. FUNGIZONE [Suspect]
     Indication: CRYPTOCOCCOSIS
     Dosage: DAILY DOES INCREASED TO 40 MG ON 23-APR-2003
     Route: 042
     Dates: start: 20030421, end: 20030619
  2. FLUCONAZOLE [Concomitant]
     Dates: start: 20030417

REACTIONS (1)
  - NEPHROGENIC DIABETES INSIPIDUS [None]
